FAERS Safety Report 6937462-1 (Version None)
Quarter: 2010Q3

REPORT INFORMATION
  Report Type: 
  Country: None (occurrence: None)
  Receive Date: 20100823
  Receipt Date: 20100812
  Transmission Date: 20110219
  Serious: Yes (Hospitalization)
  Sender: FDA-Public Use
  Company Number: TW-ROCHE-720956

PATIENT
  Age: 66 Year

DRUGS (2)
  1. PEGASYS [Suspect]
     Indication: HEPATITIS C
     Dosage: ROUTE AND FORM; UNKNOWN
     Route: 065
     Dates: start: 20100401, end: 20100716
  2. RIBAVIRIN [Concomitant]
     Indication: HEPATITIS C
     Dosage: FREQUENCY: DAILY.
     Route: 065
     Dates: start: 20100401

REACTIONS (4)
  - DYSPHAGIA [None]
  - GASTROINTESTINAL HAEMORRHAGE [None]
  - SALMONELLOSIS [None]
  - WALKING DISABILITY [None]
